FAERS Safety Report 4398595-X (Version None)
Quarter: 2004Q3

REPORT INFORMATION
  Report Type: 
  Country: None (occurrence: None)
  Receive Date: 20040712
  Receipt Date: 20040702
  Transmission Date: 20050211
  Serious: Yes (Other)
  Sender: FDA-Public Use
  Company Number: JP-JNJFOC-20040606651

PATIENT
  Age: 61 Year
  Sex: Male

DRUGS (3)
  1. ITRACONAZOLE [Suspect]
     Indication: ONYCHOMYCOSIS
     Dosage: 400 MG, IN 1 DAY, ORAL
     Route: 048
     Dates: start: 20040501, end: 20040501
  2. ALLOPURINOL [Concomitant]
  3. FURSULTIAMINE (FURSULTIAMINE) [Concomitant]

REACTIONS (1)
  - THROMBOCYTOPENIA [None]
